FAERS Safety Report 4962882-4 (Version None)
Quarter: 2006Q2

REPORT INFORMATION
  Report Type: 
  Country: None (occurrence: None)
  Receive Date: 20060405
  Receipt Date: 20060117
  Transmission Date: 20061013
  Serious: Yes (Other)
  Sender: FDA-Public Use
  Company Number: PHEH2006US01059

PATIENT
  Age: 46 Year
  Sex: Male

DRUGS (5)
  1. CLOZARIL [Suspect]
     Indication: SCHIZOPHRENIA
     Dosage: TITRATED UP 25MG/WEEK TO 350MG/DAY
     Route: 048
     Dates: start: 20050805, end: 20051220
  2. CLOZARIL [Suspect]
     Dosage: UNK, UNK
     Route: 048
     Dates: start: 20051221
  3. CLOZARIL [Suspect]
     Dosage: ^RE-TITRATION^
     Route: 048
     Dates: start: 20051201
  4. REMERON [Concomitant]
  5. GLUCOTROL XL [Concomitant]

REACTIONS (8)
  - FEAR [None]
  - HALLUCINATION, AUDITORY [None]
  - INCORRECT DOSE ADMINISTERED [None]
  - NASOPHARYNGITIS [None]
  - PARANOIA [None]
  - PSYCHIATRIC SYMPTOM [None]
  - SCHIZOPHRENIA [None]
  - WHITE BLOOD CELL COUNT INCREASED [None]
